FAERS Safety Report 17752163 (Version 1)
Quarter: 2020Q2

REPORT INFORMATION
  Report Type: Spontaneous
  Country: US (occurrence: US)
  Receive Date: 20200506
  Receipt Date: 20200506
  Transmission Date: 20200714
  Serious: Yes (Hospitalization)
  Sender: FDA-Public Use
  Company Number: US-ARRAY-2020-07896

PATIENT

DRUGS (3)
  1. BRAFTOVI [Suspect]
     Active Substance: ENCORAFENIB
     Indication: METASTASIS
     Dosage: 300 MG, QD 14 DAYS ON THEN 14 DAYS OFF
     Route: 048
     Dates: start: 20191217
  2. MEKTOVI [Suspect]
     Active Substance: BINIMETINIB
     Indication: METASTASIS
     Dosage: 30 MG, BID 14 DAYS ON THEN 14 DAYS OFF
     Route: 048
     Dates: start: 20191217
  3. LEVOTHROID [Concomitant]
     Active Substance: LEVOTHYROXINE SODIUM
     Indication: PRODUCT USED FOR UNKNOWN INDICATION
     Dosage: UNK

REACTIONS (2)
  - Bacteraemia [Unknown]
  - Off label use [Unknown]

NARRATIVE: CASE EVENT DATE: 20191217
